FAERS Safety Report 5739946-0 (Version None)
Quarter: 2008Q2

REPORT INFORMATION
  Report Type: 
  Country: None (occurrence: None)
  Receive Date: 20080516
  Receipt Date: 20080506
  Transmission Date: 20081010
  Serious: Yes (Hospitalization, Other)
  Sender: FDA-Public Use
  Company Number: IT-BAYER-200817847GPV

PATIENT

DRUGS (15)
  1. CAMPATH [Suspect]
     Indication: PERIPHERAL T-CELL LYMPHOMA UNSPECIFIED
     Route: 058
     Dates: start: 20080204
  2. CAMPATH [Suspect]
     Route: 058
  3. CAMPATH [Suspect]
     Route: 058
  4. CAMPATH [Suspect]
     Route: 058
  5. DOXORUBICIN HCL [Suspect]
     Indication: PERIPHERAL T-CELL LYMPHOMA UNSPECIFIED
     Route: 065
     Dates: start: 20080204
  6. VINCRISTINE [Suspect]
     Indication: PERIPHERAL T-CELL LYMPHOMA UNSPECIFIED
     Route: 065
     Dates: start: 20080204
  7. CYCLOPHOSPHAMIDE [Suspect]
     Indication: PERIPHERAL T-CELL LYMPHOMA UNSPECIFIED
     Route: 065
     Dates: start: 20080204
  8. PREDNISONE TAB [Suspect]
     Indication: PERIPHERAL T-CELL LYMPHOMA UNSPECIFIED
     Route: 048
     Dates: start: 20080204
  9. METHOTREXATE [Suspect]
     Indication: PERIPHERAL T-CELL LYMPHOMA UNSPECIFIED
     Route: 037
  10. CYTARABINE [Suspect]
     Indication: PERIPHERAL T-CELL LYMPHOMA UNSPECIFIED
     Route: 037
  11. DEXAMETHASONE [Suspect]
     Indication: PERIPHERAL T-CELL LYMPHOMA UNSPECIFIED
     Route: 037
  12. ZOVIRAX [Concomitant]
     Indication: PROPHYLAXIS
     Dosage: TOTAL DAILY DOSE: 1600 MG
  13. ZEFFIX [Concomitant]
     Indication: PROPHYLAXIS
     Dosage: TOTAL DAILY DOSE: 100 MG
  14. BACTRIM [Concomitant]
     Indication: PROPHYLAXIS
  15. OMEPRAZOLE [Concomitant]
     Indication: PROPHYLAXIS
     Route: 065

REACTIONS (1)
  - MESENTERIC VEIN THROMBOSIS [None]
